FAERS Safety Report 8822128 (Version 3)
Quarter: 2014Q1

REPORT INFORMATION
  Report Type: Spontaneous
  Country: FI (occurrence: FI)
  Receive Date: 20121003
  Receipt Date: 20140204
  Transmission Date: 20141002
  Serious: No
  Sender: FDA-Public Use
  Company Number: FI-JNJFOC-20120908081

PATIENT
  Sex: Female

DRUGS (2)
  1. DUROGESIC [Suspect]
     Indication: PAIN MANAGEMENT
     Route: 062
  2. DUROGESIC [Suspect]
     Indication: PAIN MANAGEMENT
     Route: 062

REACTIONS (3)
  - Product quality issue [Unknown]
  - Wrong technique in drug usage process [Unknown]
  - Product quality issue [Unknown]
